FAERS Safety Report 12076292 (Version 1)
Quarter: 2016Q1

REPORT INFORMATION
  Report Type: Spontaneous
  Country: US (occurrence: US)
  Receive Date: 20160215
  Receipt Date: 20160215
  Transmission Date: 20160526
  Serious: Yes (Other)
  Sender: FDA-Public Use
  Company Number: US-WEST-WARD PHARMACEUTICALS CORP.-US-H14001-16-00222

PATIENT
  Age: 23 Year
  Sex: Male
  Weight: 51 kg

DRUGS (10)
  1. PHENYTOIN. [Suspect]
     Active Substance: PHENYTOIN
     Route: 065
     Dates: start: 197703, end: 197705
  2. CHLORAMPHENICOL [Suspect]
     Active Substance: CHLORAMPHENICOL
     Indication: PSEUDOMONAS INFECTION
     Route: 065
     Dates: start: 197705, end: 1977
  3. CHLORAMPHENICOL [Suspect]
     Active Substance: CHLORAMPHENICOL
     Route: 048
     Dates: start: 197705, end: 1977
  4. PHENOBARBITAL. [Suspect]
     Active Substance: PHENOBARBITAL
     Indication: SEIZURE
     Route: 065
     Dates: start: 197703
  5. PHENOBARBITAL. [Suspect]
     Active Substance: PHENOBARBITAL
     Route: 065
  6. CARBENICILLIN [Concomitant]
     Active Substance: CARBENICILLIN
     Indication: PSEUDOMONAS INFECTION
     Route: 042
     Dates: start: 197705, end: 1977
  7. PHENYTOIN. [Suspect]
     Active Substance: PHENYTOIN
     Indication: SEIZURE
     Route: 065
  8. PHENYTOIN. [Suspect]
     Active Substance: PHENYTOIN
     Route: 065
  9. PHENOBARBITAL. [Suspect]
     Active Substance: PHENOBARBITAL
     Route: 065
  10. GENTAMICIN. [Concomitant]
     Active Substance: GENTAMICIN
     Indication: PSEUDOMONAS INFECTION
     Route: 042
     Dates: start: 197705, end: 1977

REACTIONS (8)
  - Toxicity to various agents [Recovered/Resolved]
  - Inhibitory drug interaction [Recovered/Resolved]
  - Sedation [Recovered/Resolved]
  - Muscle twitching [Recovered/Resolved]
  - Slow speech [Recovered/Resolved]
  - Lethargy [Recovered/Resolved]
  - Dysarthria [Recovered/Resolved]
  - Anticonvulsant drug level increased [Recovered/Resolved]

NARRATIVE: CASE EVENT DATE: 197705
